FAERS Safety Report 9076949 (Version 1)
Quarter: 2013Q1

REPORT INFORMATION
  Report Type: Report from Study
  Country: US (occurrence: US)
  Receive Date: 20130129
  Receipt Date: 20130129
  Transmission Date: 20140127
  Serious: No
  Sender: FDA-Public Use
  Company Number: US-ABBOTT-12P-163-0946307-00

PATIENT
  Age: 90 Year
  Sex: Female

DRUGS (17)
  1. HUMIRA 40 MG/0.8 ML PEN [Suspect]
     Indication: RHEUMATOID ARTHRITIS
  2. CELEBREX [Concomitant]
     Indication: PRODUCT USED FOR UNKNOWN INDICATION
     Dosage: 200MG DAILY
  3. CLONIDINE [Concomitant]
     Indication: PRODUCT USED FOR UNKNOWN INDICATION
  4. LOTREL [Concomitant]
     Indication: PRODUCT USED FOR UNKNOWN INDICATION
     Dosage: 5-20MG TWICE A DAY
  5. TOPROL XL [Concomitant]
     Indication: HYPERTENSION
     Dosage: 100MG DAILY
  6. NAMENDA [Concomitant]
     Indication: PRODUCT USED FOR UNKNOWN INDICATION
     Dosage: 0.5 DAILY
  7. CYMBALTA [Concomitant]
     Indication: DEPRESSION
  8. REMERON [Concomitant]
     Indication: DEPRESSION
     Dosage: AT BEDTIME
  9. SEROQUEL [Concomitant]
     Indication: DEPRESSION
     Dosage: 0.5 TABLET DAILY
  10. ATIVAN [Concomitant]
     Indication: ANXIETY
     Dosage: TWICE A DAY AS NEEDED
  11. LUNESTA [Concomitant]
     Indication: INSOMNIA
  12. OPANA ER [Concomitant]
     Indication: PAIN
  13. FOSAMAX [Concomitant]
     Indication: OSTEOPOROSIS
     Dosage: WEEKLY
  14. PRILOSEC [Concomitant]
     Indication: ABDOMINAL DISCOMFORT
     Dosage: 1-2 TABLETS DAILY
  15. VIT C [Concomitant]
     Indication: PRODUCT USED FOR UNKNOWN INDICATION
  16. CALCIUM [Concomitant]
     Indication: PRODUCT USED FOR UNKNOWN INDICATION
     Dosage: DAILY
  17. FORTICAL [Concomitant]
     Indication: PRODUCT USED FOR UNKNOWN INDICATION
     Dosage: 1 SPRAY DAILY
     Route: 045

REACTIONS (2)
  - Injection site erythema [Recovering/Resolving]
  - Incorrect dose administered [Recovering/Resolving]
